FAERS Safety Report 14211532 (Version 7)
Quarter: 2025Q1

REPORT INFORMATION
  Report Type: Report from Study
  Country: CA (occurrence: CA)
  Receive Date: 20171121
  Receipt Date: 20250114
  Transmission Date: 20250409
  Serious: Yes (Hospitalization, Other)
  Sender: PFIZER
  Company Number: CA-TAKEDA-2017TUS024077

PATIENT
  Age: 69 Year
  Sex: Male

DRUGS (16)
  1. PANTOPRAZOLE SODIUM [Suspect]
     Active Substance: PANTOPRAZOLE SODIUM
     Route: 065
  2. ENTYVIO [Suspect]
     Active Substance: VEDOLIZUMAB
     Indication: Crohn^s disease
     Route: 042
     Dates: start: 20171102
  3. ENTYVIO [Suspect]
     Active Substance: VEDOLIZUMAB
     Route: 042
     Dates: start: 20180516
  4. ENTYVIO [Suspect]
     Active Substance: VEDOLIZUMAB
     Route: 042
     Dates: start: 20220127
  5. ENTYVIO [Suspect]
     Active Substance: VEDOLIZUMAB
     Route: 042
  6. SULFASALAZINE [Concomitant]
     Active Substance: SULFASALAZINE
  7. CHOLECALCIFEROL [Concomitant]
     Active Substance: CHOLECALCIFEROL
  8. FOLIC ACID [Concomitant]
     Active Substance: FOLIC ACID
  9. METOPROLOL [Concomitant]
     Active Substance: METOPROLOL
  10. DIGOXIN [Concomitant]
     Active Substance: DIGOXIN
  11. SYNTHROID [Concomitant]
     Active Substance: LEVOTHYROXINE SODIUM
  12. CORTISONE [Concomitant]
     Active Substance: CORTISONE
  13. LAVEMENT PHOSPHATE [Concomitant]
  14. HYDROCORTISONE [Concomitant]
     Active Substance: HYDROCORTISONE
  15. PENTASOL [Concomitant]
  16. MESALAMINE [Concomitant]
     Active Substance: MESALAMINE

REACTIONS (9)
  - Arrhythmia [Unknown]
  - Pulmonary oedema [Unknown]
  - Bronchitis [Recovered/Resolved]
  - Coronary artery disease [Unknown]
  - Haemothorax [Unknown]
  - Pneumonia [Unknown]
  - Fall [Unknown]
  - Dyspnoea [Unknown]
  - Fatigue [Unknown]

NARRATIVE: CASE EVENT DATE: 20180101
